FAERS Safety Report 11853619 (Version 1)
Quarter: 2015Q4

REPORT INFORMATION
  Report Type: Spontaneous
  Country: US (occurrence: US)
  Receive Date: 20151219
  Receipt Date: 20151219
  Transmission Date: 20160305
  Serious: No
  Sender: FDA-Public Use
  Company Number: US-BAUSCH-BL-2015-019040

PATIENT
  Sex: Male

DRUGS (1)
  1. XENAZINE [Suspect]
     Active Substance: TETRABENAZINE
     Indication: SEIZURE
     Dosage: TITRATION DOSING
     Dates: start: 20150723

REACTIONS (3)
  - Off label use [Recovered/Resolved]
  - Depression [Unknown]
  - Dystonia [Unknown]
